FAERS Safety Report 4538387-1 (Version None)
Quarter: 2004Q4

REPORT INFORMATION
  Report Type: 
  Country: None (occurrence: None)
  Receive Date: 20041223
  Receipt Date: 20041223
  Transmission Date: 20050328
  Serious: No
  Sender: FDA-Public Use
  Company Number: None

PATIENT
  Age: 36 Year
  Sex: Female
  Weight: 72.5755 kg

DRUGS (1)
  1. ZOLOFT [Suspect]
     Indication: IRRITABLE BOWEL SYNDROME
     Dosage: 50 MG /DAY
     Dates: start: 20020701, end: 20040401

REACTIONS (4)
  - ABNORMAL BEHAVIOUR [None]
  - ALCOHOLISM [None]
  - FEELING ABNORMAL [None]
  - FLAT AFFECT [None]
